FAERS Safety Report 25737438 (Version 3)
Quarter: 2025Q4

REPORT INFORMATION
  Report Type: Spontaneous
  Country: US (occurrence: US)
  Receive Date: 20250828
  Receipt Date: 20251014
  Transmission Date: 20260119
  Serious: No
  Sender: BIOMARIN
  Company Number: US-BIOMARINAP-US-2025-168353

PATIENT
  Sex: Female
  Weight: 24.036 kg

DRUGS (1)
  1. VOXZOGO [Suspect]
     Active Substance: VOSORITIDE
     Indication: Osteochondrodysplasia
     Dosage: 0.4 MILLIGRAM, QD

REACTIONS (2)
  - Injection site pain [Unknown]
  - Syringe issue [Unknown]
